FAERS Safety Report 15397896 (Version 5)
Quarter: 2018Q4

REPORT INFORMATION
  Report Type: Report from Study
  Country: CA (occurrence: CA)
  Receive Date: 20180918
  Receipt Date: 20181218
  Transmission Date: 20190204
  Serious: Yes (Hospitalization)
  Sender: FDA-Public Use
  Company Number: CA-JNJFOC-20180913111

PATIENT
  Age: 58 Year
  Sex: Male

DRUGS (1)
  1. STELARA [Suspect]
     Active Substance: USTEKINUMAB
     Indication: CROHN^S DISEASE
     Route: 058
     Dates: start: 20170406

REACTIONS (3)
  - Pancreatic carcinoma [Not Recovered/Not Resolved]
  - Gallbladder disorder [Unknown]
  - Hospitalisation [Unknown]

NARRATIVE: CASE EVENT DATE: 20180910
